FAERS Safety Report 23513858 (Version 2)
Quarter: 2024Q2

REPORT INFORMATION
  Report Type: Spontaneous
  Country: US (occurrence: US)
  Receive Date: 20240212
  Receipt Date: 20240425
  Transmission Date: 20240716
  Serious: Yes (Other)
  Sender: FDA-Public Use
  Company Number: US-PFIZER INC-202400038694

PATIENT
  Age: 62 Year
  Sex: Female
  Weight: 71.655 kg

DRUGS (4)
  1. IBRANCE [Suspect]
     Active Substance: PALBOCICLIB
     Indication: Breast cancer metastatic
     Dosage: ONE 75 MG TABLET DAILY, 3 WEEKS ON, ONE WEEK OFF
     Route: 048
     Dates: start: 202001, end: 2023
  2. LORATADINE [Concomitant]
     Active Substance: LORATADINE
  3. LETROZOLE [Concomitant]
     Active Substance: LETROZOLE
  4. VITAMIN D NOS [Concomitant]
     Active Substance: VITAMIN D NOS

REACTIONS (1)
  - Knee arthroplasty [Recovered/Resolved]

NARRATIVE: CASE EVENT DATE: 20231001
